FAERS Safety Report 17399277 (Version 2)
Quarter: 2020Q1

REPORT INFORMATION
  Report Type: Spontaneous
  Country: IT (occurrence: IT)
  Receive Date: 20200211
  Receipt Date: 20200220
  Transmission Date: 20200409
  Serious: Yes (Hospitalization)
  Sender: FDA-Public Use
  Company Number: IT-SUN PHARMACEUTICAL INDUSTRIES LTD-2020RR-236078

PATIENT
  Age: 4 Year
  Sex: Female
  Weight: 13 kg

DRUGS (1)
  1. CLARITHROMYCIN. [Suspect]
     Active Substance: CLARITHROMYCIN
     Indication: BRONCHITIS
     Dosage: 600 MILLIGRAM, DAILY
     Route: 048
     Dates: start: 20200116, end: 20200118

REACTIONS (3)
  - Medication error [Unknown]
  - Overdose [Unknown]
  - Asthenia [Unknown]

NARRATIVE: CASE EVENT DATE: 20200118
